FAERS Safety Report 25176225 (Version 3)
Quarter: 2025Q2

REPORT INFORMATION
  Report Type: Spontaneous
  Country: JP (occurrence: JP)
  Receive Date: 20250409
  Receipt Date: 20250411
  Transmission Date: 20250717
  Serious: Yes (Other)
  Sender: REGENERON
  Company Number: JP-BAYER-2025A045861

PATIENT
  Age: 80 Year
  Sex: Female

DRUGS (1)
  1. EYLEA HD [Suspect]
     Active Substance: AFLIBERCEPT
     Indication: Age-related macular degeneration
     Dates: start: 202406, end: 202503

REACTIONS (1)
  - Periphlebitis [Recovering/Resolving]

NARRATIVE: CASE EVENT DATE: 20250301
